FAERS Safety Report 16617416 (Version 2)
Quarter: 2019Q3

REPORT INFORMATION
  Report Type: Spontaneous
  Country: US (occurrence: US)
  Receive Date: 20190723
  Receipt Date: 20190813
  Transmission Date: 20191004
  Serious: Yes (Hospitalization, Other)
  Sender: FDA-Public Use
  Company Number: US-ELI_LILLY_AND_COMPANY-US201907007231

PATIENT
  Sex: Female

DRUGS (2)
  1. HUMALOG [Suspect]
     Active Substance: INSULIN LISPRO
     Dosage: UNK, PRN
     Route: 058
  2. HUMALOG [Suspect]
     Active Substance: INSULIN LISPRO
     Indication: TYPE 2 DIABETES MELLITUS
     Dosage: UNK, PRN
     Route: 058
     Dates: start: 2014

REACTIONS (9)
  - Blood glucose increased [Unknown]
  - Hyperkeratosis [Recovering/Resolving]
  - Neuropathic arthropathy [Not Recovered/Not Resolved]
  - Diabetic bullosis [Recovering/Resolving]
  - Foot fracture [Not Recovered/Not Resolved]
  - Blood glucose increased [Recovered/Resolved]
  - Neuropathy peripheral [Not Recovered/Not Resolved]
  - Lung disorder [Unknown]
  - Dyspnoea [Recovering/Resolving]
